FAERS Safety Report 18523350 (Version 1)
Quarter: 2020Q4

REPORT INFORMATION
  Report Type: Report from Study
  Country: BR (occurrence: BR)
  Receive Date: 20201119
  Receipt Date: 20201119
  Transmission Date: 20210114
  Serious: Yes (Hospitalization)
  Sender: FDA-Public Use
  Company Number: NVSC2020BR305583

PATIENT
  Age: 70 Year
  Sex: Female

DRUGS (1)
  1. COSENTYX [Suspect]
     Active Substance: SECUKINUMAB
     Indication: PSORIATIC ARTHROPATHY
     Dosage: UNK UNK, QMO (2 PENS PER MONTH)
     Route: 065

REACTIONS (10)
  - Pulmonary pain [Unknown]
  - Headache [Recovered/Resolved]
  - Back pain [Recovered/Resolved]
  - Infection [Recovered/Resolved]
  - Inappropriate schedule of product administration [Unknown]
  - Anosmia [Recovered/Resolved]
  - Illness [Recovered/Resolved]
  - Dysgeusia [Recovered/Resolved]
  - Asthenia [Recovered/Resolved]
  - COVID-19 [Recovered/Resolved]

NARRATIVE: CASE EVENT DATE: 202009
